FAERS Safety Report 7588660-8 (Version None)
Quarter: 2011Q3

REPORT INFORMATION
  Report Type: 
  Country: None (occurrence: None)
  Receive Date: 20110705
  Receipt Date: 20110705
  Transmission Date: 20111222
  Serious: Yes (Other)
  Sender: FDA-Public Use
  Company Number: None

PATIENT
  Age: 50 Year
  Sex: Female
  Weight: 51.709 kg

DRUGS (1)
  1. LOTEMAX [Suspect]
     Indication: ROSACEA
     Dosage: 1 DROP
     Route: 047
     Dates: start: 20110427, end: 20110531

REACTIONS (1)
  - INFLAMMATION [None]
